FAERS Safety Report 6732912-8 (Version None)
Quarter: 2010Q2

REPORT INFORMATION
  Report Type: 
  Country: None (occurrence: None)
  Receive Date: 20100519
  Receipt Date: 20100517
  Transmission Date: 20101027
  Serious: Yes (Hospitalization)
  Sender: FDA-Public Use
  Company Number: US-GILEAD-2010-0028979

PATIENT
  Sex: Male
  Weight: 131 kg

DRUGS (19)
  1. LETAIRIS [Suspect]
     Indication: PULMONARY ARTERIAL HYPERTENSION
     Route: 048
     Dates: start: 20100415
  2. PLAVIX [Concomitant]
  3. LASIX [Concomitant]
  4. LOPRESSOR [Concomitant]
  5. LOTREL [Concomitant]
  6. ZOCOR [Concomitant]
  7. SPIRIVA [Concomitant]
  8. VENTOLIN HFA [Concomitant]
  9. PREDNISONE TAB [Concomitant]
  10. ADVAIR DISKUS 100/50 [Concomitant]
  11. METFORMIN HYDROCHLORIDE [Concomitant]
  12. NOVOLIN [Concomitant]
  13. PROZAC [Concomitant]
  14. PEPCID [Concomitant]
  15. ZEGERID [Concomitant]
  16. FIBER [Concomitant]
  17. FISH OIL [Concomitant]
  18. CENTRUM SILVER [Concomitant]
  19. POT CL MICRO [Concomitant]

REACTIONS (2)
  - CARDIAC FAILURE CONGESTIVE [None]
  - DYSPNOEA [None]
